FAERS Safety Report 11855246 (Version 1)
Quarter: 2015Q4

REPORT INFORMATION
  Report Type: Spontaneous
  Country: GB (occurrence: GB)
  Receive Date: 20151221
  Receipt Date: 20151221
  Transmission Date: 20160305
  Serious: Yes (Other)
  Sender: FDA-Public Use
  Company Number: GB-WATSON-2015-15928

PATIENT
  Age: 35 Year
  Sex: Female

DRUGS (1)
  1. CYCLOSPORINE (UNKNOWN) [Suspect]
     Active Substance: CYCLOSPORINE
     Indication: PSORIASIS
     Dosage: UNK
     Route: 065

REACTIONS (1)
  - Benign intracranial hypertension [Recovered/Resolved]
